FAERS Safety Report 16382089 (Version 1)
Quarter: 2019Q2

REPORT INFORMATION
  Report Type: Spontaneous
  Country: US (occurrence: US)
  Receive Date: 20190603
  Receipt Date: 20190603
  Transmission Date: 20190711
  Serious: No
  Sender: FDA-Public Use
  Company Number: US-BIOGEN-2019BI00738832

PATIENT
  Sex: Female

DRUGS (2)
  1. TYSABRI [Suspect]
     Active Substance: NATALIZUMAB
     Indication: MULTIPLE SCLEROSIS
     Route: 065
     Dates: start: 20130605, end: 20170517
  2. TYSABRI [Suspect]
     Active Substance: NATALIZUMAB
     Route: 065
     Dates: start: 20080123, end: 20110104

REACTIONS (7)
  - Loss of consciousness [Unknown]
  - Temperature intolerance [Unknown]
  - Nasopharyngitis [Unknown]
  - Feeling hot [Unknown]
  - Cognitive disorder [Unknown]
  - Trigeminal neuralgia [Unknown]
  - Memory impairment [Unknown]
